FAERS Safety Report 8493204-2 (Version None)
Quarter: 2012Q3

REPORT INFORMATION
  Report Type: 
  Country: None (occurrence: None)
  Receive Date: 20120706
  Receipt Date: 20120628
  Transmission Date: 20120928
  Serious: Yes (Hospitalization, Other)
  Sender: FDA-Public Use
  Company Number: DE-JNJFOC-20110409367

PATIENT
  Age: 22 Year
  Sex: Female
  Weight: 50 kg

DRUGS (9)
  1. REMICADE [Suspect]
     Route: 042
     Dates: start: 20100416
  2. REMICADE [Suspect]
     Route: 042
     Dates: start: 20100625
  3. REMICADE [Suspect]
     Route: 042
     Dates: start: 20100806
  4. REMICADE [Suspect]
     Indication: COLITIS ULCERATIVE
     Route: 042
     Dates: start: 20100305
  5. LAXATIVE [Suspect]
     Indication: ENDOSCOPY
     Dates: start: 20110112
  6. REMICADE [Suspect]
     Route: 042
     Dates: start: 20100319
  7. REMICADE [Suspect]
     Route: 042
     Dates: start: 20100916
  8. PANTOPRAZOLE [Concomitant]
     Indication: GASTROINTESTINAL DISORDER THERAPY
     Route: 048
  9. AZATHIOPRINE [Suspect]
     Indication: COLITIS ULCERATIVE

REACTIONS (4)
  - PROCTOCOLECTOMY [None]
  - CIRCULATORY COLLAPSE [None]
  - COLITIS ULCERATIVE [None]
  - LEUKOPENIA [None]
